FAERS Safety Report 17840483 (Version 1)
Quarter: 2020Q2

REPORT INFORMATION
  Report Type: Spontaneous
  Country: PT (occurrence: PT)
  Receive Date: 20200529
  Receipt Date: 20200529
  Transmission Date: 20200714
  Serious: Yes (Other)
  Sender: FDA-Public Use
  Company Number: PT-ALIMERA SCIENCES LIMITED-PT-IL-2020-004655

PATIENT
  Age: 34 Year
  Sex: Female

DRUGS (1)
  1. ILUVIEN [Suspect]
     Active Substance: FLUOCINOLONE ACETONIDE
     Indication: CHORIORETINITIS
     Dosage: 0.25 ?G, QD - UNKNOWN EYE
     Route: 031

REACTIONS (4)
  - Vitrectomy [Recovered/Resolved]
  - Exposure during pregnancy [Unknown]
  - Device dislocation [Recovered/Resolved]
  - Drug ineffective [Unknown]

NARRATIVE: CASE EVENT DATE: 20200519
